FAERS Safety Report 9144822 (Version 2)
Quarter: 2013Q2

REPORT INFORMATION
  Report Type: Spontaneous
  Country: US (occurrence: US)
  Receive Date: 20130307
  Receipt Date: 20130426
  Transmission Date: 20140414
  Serious: Yes (Death, Other)
  Sender: FDA-Public Use
  Company Number: US-AMGEN-USASP2013015518

PATIENT
  Age: 59 Year
  Sex: Male

DRUGS (1)
  1. PROCRIT [Suspect]
     Indication: PRODUCT USED FOR UNKNOWN INDICATION
     Dosage: 10,000, 2000, AND 4000 UNITS

REACTIONS (4)
  - Death [Fatal]
  - Prostate cancer [Unknown]
  - Renal failure chronic [Unknown]
  - Nephrogenic anaemia [Unknown]
